FAERS Safety Report 7999282-9 (Version None)
Quarter: 2011Q4

REPORT INFORMATION
  Report Type: 
  Country: None (occurrence: None)
  Receive Date: 20111221
  Receipt Date: 20111219
  Transmission Date: 20120403
  Serious: Yes (Other)
  Sender: FDA-Public Use
  Company Number: ES-ABBOTT-11P-144-0880238-00

PATIENT
  Age: 34 Year
  Sex: Female
  Weight: 70 kg

DRUGS (3)
  1. INFLIXIMAB [Suspect]
     Indication: PSORIATIC ARTHROPATHY
  2. ADALIMUMAB [Suspect]
     Indication: PSORIATIC ARTHROPATHY
     Route: 058
     Dates: start: 20101018, end: 20101118
  3. INFLIXIMAB [Suspect]

REACTIONS (2)
  - VISUAL ACUITY REDUCED [None]
  - DRY EYE [None]
